FAERS Safety Report 10616665 (Version 1)
Quarter: 2014Q4

REPORT INFORMATION
  Report Type: Spontaneous
  Country: RU (occurrence: RU)
  Receive Date: 20141201
  Receipt Date: 20141201
  Transmission Date: 20150529
  Serious: Yes (Hospitalization, Congenital Anomaly)
  Sender: FDA-Public Use
  Company Number: RU-NOVOPROD-430530

PATIENT
  Age: 8 Week
  Sex: Female
  Weight: 3.84 kg

DRUGS (6)
  1. LEVEMIR [Suspect]
     Active Substance: INSULIN DETEMIR
     Indication: TYPE 1 DIABETES MELLITUS
     Dosage: 40 U, QD
     Route: 064
     Dates: start: 201405, end: 2014
  2. ACTRAPID [Suspect]
     Active Substance: INSULIN HUMAN
     Indication: TYPE 1 DIABETES MELLITUS
     Dosage: UNK
     Route: 064
     Dates: end: 201403
  3. PROTAPHANE [Suspect]
     Active Substance: INSULIN HUMAN
     Indication: TYPE 1 DIABETES MELLITUS
     Dosage: UNK
     Route: 064
     Dates: end: 201405
  4. NOVORAPID [Suspect]
     Active Substance: INSULIN ASPART
     Dosage: 9-12U/DAY
     Route: 063
     Dates: start: 2014
  5. NOVORAPID [Suspect]
     Active Substance: INSULIN ASPART
     Indication: TYPE 1 DIABETES MELLITUS
     Dosage: 9-12U/DAY
     Route: 064
     Dates: start: 201403, end: 2014
  6. LEVEMIR [Suspect]
     Active Substance: INSULIN DETEMIR
     Dosage: 40 U, QD
     Route: 063
     Dates: start: 2014

REACTIONS (11)
  - Premature baby [Unknown]
  - Exposure during breast feeding [Unknown]
  - Neonatal hypoxia [Not Recovered/Not Resolved]
  - Hyporeflexia [None]
  - Maternal drugs affecting foetus [None]
  - Hypotonia neonatal [None]
  - Foetal exposure during pregnancy [Recovered/Resolved]
  - Diabetic foetopathy [Not Recovered/Not Resolved]
  - Hypoxic-ischaemic encephalopathy [Not Recovered/Not Resolved]
  - Hypoglycaemia neonatal [Not Recovered/Not Resolved]
  - Caesarean section [None]

NARRATIVE: CASE EVENT DATE: 2014
